FAERS Safety Report 9057629 (Version 1)
Quarter: 2013Q1

REPORT INFORMATION
  Report Type: Spontaneous
  Country: US (occurrence: None)
  Receive Date: 20130204
  Receipt Date: 20130204
  Transmission Date: 20140127
  Serious: Yes (Hospitalization)
  Sender: FDA-Public Use
  Company Number: None

PATIENT
  Age: 91 Year
  Sex: Male
  Weight: 61.9 kg

DRUGS (11)
  1. COUMADIN [Suspect]
     Indication: ATRIAL FIBRILLATION
     Dosage: CHRONIC
     Route: 048
  2. CITALOPRAM [Concomitant]
  3. POLYETHYLENE GLYCOL [Concomitant]
  4. VIT D3 [Concomitant]
  5. TUMS [Concomitant]
  6. APAP [Concomitant]
  7. MAALOX [Concomitant]
  8. SEROQUEL [Concomitant]
  9. DOCUSATE [Concomitant]
  10. TRAZODONE [Concomitant]
  11. PHOSPHORATED CARBOHYDRATE SO [Concomitant]

REACTIONS (3)
  - Vomiting projectile [None]
  - Haematuria [None]
  - Escherichia urinary tract infection [None]
